FAERS Safety Report 13064322 (Version 1)
Quarter: 2016Q4

REPORT INFORMATION
  Report Type: Spontaneous
  Country: US (occurrence: US)
  Receive Date: 20161224
  Receipt Date: 20161224
  Transmission Date: 20170207
  Serious: No
  Sender: FDA-Public Use
  Company Number: None

PATIENT
  Age: 36 Year
  Sex: Female

DRUGS (1)
  1. SENSODYNE COMPLETE PROTECTION [Suspect]
     Active Substance: STANNOUS FLUORIDE
     Indication: TEMPERATURE INTOLERANCE
     Dosage: ?          QUANTITY:1 STRIP;?
     Route: 048
     Dates: start: 20161221, end: 20161223

REACTIONS (9)
  - Paraesthesia oral [None]
  - Pharyngeal paraesthesia [None]
  - Oropharyngeal pain [None]
  - Pain [None]
  - Glossodynia [None]
  - Tongue discolouration [None]
  - Oral mucosal exfoliation [None]
  - Lymphadenopathy [None]
  - Oral mucosal discolouration [None]

NARRATIVE: CASE EVENT DATE: 20161221
